FAERS Safety Report 6449983-9 (Version None)
Quarter: 2009Q4

REPORT INFORMATION
  Report Type: 
  Country: None (occurrence: None)
  Receive Date: 20091123
  Receipt Date: 20091112
  Transmission Date: 20100525
  Serious: Yes (Other)
  Sender: FDA-Public Use
  Company Number: GB-JNJFOC-20091103945

PATIENT
  Age: 5 Decade
  Sex: Male

DRUGS (3)
  1. PREZISTA [Suspect]
     Indication: DRUG USE FOR UNKNOWN INDICATION
     Route: 048
  2. ETRAVIRINE [Suspect]
     Indication: DRUG USE FOR UNKNOWN INDICATION
     Route: 048
  3. RITONAVIR [Concomitant]

REACTIONS (2)
  - CONFUSIONAL STATE [None]
  - PSYCHOTIC DISORDER [None]
